FAERS Safety Report 5663092-8 (Version None)
Quarter: 2008Q1

REPORT INFORMATION
  Report Type: 
  Country: None (occurrence: None)
  Receive Date: 20080313
  Receipt Date: 20080304
  Transmission Date: 20080703
  Serious: Yes (Other)
  Sender: FDA-Public Use
  Company Number: A0706134A

PATIENT
  Age: 57 Year
  Sex: Female

DRUGS (4)
  1. VERAMYST [Suspect]
     Indication: COUGH
     Dosage: 4SPR TWICE PER DAY
     Route: 045
     Dates: start: 20080112, end: 20080119
  2. ASCORBIC ACID [Concomitant]
  3. CALCIUM [Concomitant]
  4. ACTONEL [Concomitant]

REACTIONS (11)
  - ARTHRALGIA [None]
  - BACK PAIN [None]
  - BLOOD CORTISOL ABNORMAL [None]
  - CHOKING [None]
  - COUGH [None]
  - DRUG ADMINISTRATION ERROR [None]
  - DRUG INEFFECTIVE [None]
  - DYSPNOEA [None]
  - MYALGIA [None]
  - OVERDOSE [None]
  - PAIN IN EXTREMITY [None]
